FAERS Safety Report 23226126 (Version 1)
Quarter: 2023Q4

REPORT INFORMATION
  Report Type: Spontaneous
  Country: KR (occurrence: KR)
  Receive Date: 20231124
  Receipt Date: 20231124
  Transmission Date: 20240110
  Serious: Yes (Other)
  Sender: FDA-Public Use
  Company Number: KR-SA-SAC20231122000163

PATIENT
  Sex: Male

DRUGS (1)
  1. ZOLPIDEM TARTRATE [Suspect]
     Active Substance: ZOLPIDEM TARTRATE
     Dosage: UNK
     Route: 048

REACTIONS (4)
  - Immunodeficiency [Unknown]
  - Incorrect product administration duration [Unknown]
  - Drug ineffective [Unknown]
  - Incorrect dose administered [Unknown]
